FAERS Safety Report 12490091 (Version 1)
Quarter: 2016Q2

REPORT INFORMATION
  Report Type: Report from Study
  Country: BR (occurrence: BR)
  Receive Date: 20160622
  Receipt Date: 20160622
  Transmission Date: 20160815
  Serious: Yes (Other)
  Sender: FDA-Public Use
  Company Number: BR-ABBVIE-16P-020-1658528-00

PATIENT
  Sex: Female

DRUGS (1)
  1. SYNTHROID [Suspect]
     Active Substance: LEVOTHYROXINE SODIUM
     Indication: HYPOTHYROIDISM
     Route: 065
     Dates: start: 19940601

REACTIONS (4)
  - Chronic gastritis [Unknown]
  - Gastrooesophageal reflux disease [Unknown]
  - Gastric polyps [Unknown]
  - Gastric disorder [Unknown]

NARRATIVE: CASE EVENT DATE: 2006
